FAERS Safety Report 5337473-6 (Version None)
Quarter: 2007Q2

REPORT INFORMATION
  Report Type: 
  Country: None (occurrence: None)
  Receive Date: 20070529
  Receipt Date: 20070517
  Transmission Date: 20071010
  Serious: Yes (Life-Threatening, Hospitalization)
  Sender: FDA-Public Use
  Company Number: BR-PFIZER INC-2007036687

PATIENT
  Sex: Female

DRUGS (8)
  1. SU-011,248 [Suspect]
     Indication: METASTATIC RENAL CELL CARCINOMA
     Route: 048
  2. LEVOTHYROXINE SODIUM [Concomitant]
     Route: 048
  3. OMEPRAZOLE [Concomitant]
     Route: 048
     Dates: start: 20061124, end: 20070430
  4. DIMENHYDRINATE [Concomitant]
     Route: 042
     Dates: start: 20070505, end: 20070512
  5. OMEPRAZOLE [Concomitant]
     Route: 042
  6. ONDANSETRON [Concomitant]
     Route: 042
  7. METOCLOPRAMIDE [Concomitant]
     Route: 042
  8. HEPARIN [Concomitant]
     Route: 042
     Dates: start: 20070501, end: 20070504

REACTIONS (2)
  - GENITAL HERPES [None]
  - NECROTISING FASCIITIS [None]
